FAERS Safety Report 14026782 (Version 1)
Quarter: 2017Q3

REPORT INFORMATION
  Report Type: Report from Study
  Country: CA (occurrence: CA)
  Receive Date: 20170929
  Receipt Date: 20170929
  Transmission Date: 20171128
  Serious: No
  Sender: FDA-Public Use
  Company Number: CA-NOVEN PHARMACEUTICALS, INC.-CA2017000914

PATIENT

DRUGS (19)
  1. ESTRADIOL/NORETHISTERONE ACETATE [Suspect]
     Active Substance: ESTRADIOL\NORETHINDRONE ACETATE
     Indication: PRODUCT USED FOR UNKNOWN INDICATION
     Dosage: 1 DF (140/50), 2/WK
     Route: 065
  2. SANDOSTATIN LAR DEPOT [Suspect]
     Active Substance: OCTREOTIDE ACETATE
     Indication: CARCINOID TUMOUR
     Dosage: 30 MG, EVERY FOUR WEEKS
     Route: 030
     Dates: start: 20160707
  3. ATENOLOL. [Concomitant]
     Active Substance: ATENOLOL
  4. VITAMIN E [Concomitant]
     Active Substance: .ALPHA.-TOCOPHEROL
     Dosage: 400 MG IU, ONCE DAILY FOR A WEEK
     Dates: start: 201610
  5. LYRICA [Concomitant]
     Active Substance: PREGABALIN
  6. DULOXETINE. [Suspect]
     Active Substance: DULOXETINE
     Indication: PAIN IN EXTREMITY
     Dosage: UNK, UNKNOWN
     Route: 065
  7. EURO ASA EC [Concomitant]
  8. CANDESARTAN PLUS 1A PHARMA [Suspect]
     Active Substance: CANDESARTAN CILEXETIL\HYDROCHLOROTHIAZIDE
     Indication: PRODUCT USED FOR UNKNOWN INDICATION
     Dosage: 32 MG/25 MG, QD
     Route: 048
  9. LAX-A-DAY [Concomitant]
  10. SANDOSTATIN [Suspect]
     Active Substance: OCTREOTIDE ACETATE
     Indication: CARCINOID TUMOUR
     Dosage: 100 ?G, TID
     Route: 058
  11. RIVA LANSOPRAZOLE [Concomitant]
  12. RIVA AMLODIPINE [Concomitant]
  13. APO AMITRIPTYLINE [Concomitant]
     Active Substance: AMITRIPTYLINE
  14. APO NAPROXEN [Concomitant]
     Active Substance: NAPROXEN
  15. NAPROXEN. [Concomitant]
     Active Substance: NAPROXEN
  16. AVAMYS [Concomitant]
     Active Substance: FLUTICASONE FUROATE
  17. TYLENOL [Concomitant]
     Active Substance: ACETAMINOPHEN
  18. SYNTHROID [Concomitant]
     Active Substance: LEVOTHYROXINE SODIUM
  19. RIVA ROSUVASTATIN [Concomitant]

REACTIONS (12)
  - Fatigue [Unknown]
  - Dizziness [Unknown]
  - Nausea [Recovered/Resolved]
  - Somnolence [Unknown]
  - Musculoskeletal pain [Unknown]
  - Acne [Not Recovered/Not Resolved]
  - Pruritus [Not Recovered/Not Resolved]
  - Hot flush [Unknown]
  - Back pain [Unknown]
  - Rhinorrhoea [Unknown]
  - Productive cough [Unknown]
  - Contusion [Unknown]
